FAERS Safety Report 16234475 (Version 1)
Quarter: 2019Q2

REPORT INFORMATION
  Report Type: Spontaneous
  Country: US (occurrence: US)
  Receive Date: 20190424
  Receipt Date: 20190424
  Transmission Date: 20190711
  Serious: No
  Sender: FDA-Public Use
  Company Number: US-TAKEDA-2019TUS023456

PATIENT
  Age: 71 Year
  Sex: Female
  Weight: 95.24 kg

DRUGS (2)
  1. TRINTELLIX [Suspect]
     Active Substance: VORTIOXETINE HYDROBROMIDE
     Dosage: UNK
     Route: 065
  2. TRINTELLIX [Suspect]
     Active Substance: VORTIOXETINE HYDROBROMIDE
     Indication: BIPOLAR DISORDER
     Dosage: 15 MILLIGRAM
     Route: 065
     Dates: start: 201904

REACTIONS (4)
  - Nausea [Unknown]
  - Wrong technique in product usage process [Unknown]
  - Vomiting [Unknown]
  - Abdominal pain upper [Unknown]
